FAERS Safety Report 7546405-1 (Version None)
Quarter: 2011Q2

REPORT INFORMATION
  Report Type: 
  Country: None (occurrence: None)
  Receive Date: 20110614
  Receipt Date: 20110610
  Transmission Date: 20111010
  Serious: Yes (Death, Hospitalization)
  Sender: FDA-Public Use
  Company Number: PHHY2011NO50482

PATIENT
  Sex: Female

DRUGS (2)
  1. ASPIRIN [Suspect]
     Indication: VASCULAR GRAFT
     Dosage: 160 MG, QD
     Route: 048
     Dates: start: 20010101
  2. DICLOFENAC SODIUM [Suspect]
     Indication: ARTHRALGIA
     Dosage: 50 MG 1-3 TIMES DAILY PRN
     Route: 048
     Dates: start: 20110301

REACTIONS (3)
  - DUODENAL ULCER HAEMORRHAGE [None]
  - ILEUS [None]
  - HAEMATEMESIS [None]
